FAERS Safety Report 5259394-X (Version None)
Quarter: 2007Q1

REPORT INFORMATION
  Report Type: 
  Country: None (occurrence: None)
  Receive Date: 20070305
  Receipt Date: 20070220
  Transmission Date: 20070707
  Serious: Yes (Disabling)
  Sender: FDA-Public Use
  Company Number: OSCN-PR-0608S-0227

PATIENT
  Age: 42 Year
  Sex: Male
  Weight: 66 kg

DRUGS (7)
  1. OMNISCAN [Suspect]
     Indication: KIDNEY TRANSPLANT REJECTION
     Dosage: SEE IMGAE
     Route: 042
     Dates: start: 20041231, end: 20041231
  2. OMNISCAN [Suspect]
     Indication: THROMBOSIS
     Dosage: SEE IMGAE
     Route: 042
     Dates: start: 20041231, end: 20041231
  3. OMNISCAN [Suspect]
     Indication: KIDNEY TRANSPLANT REJECTION
     Dosage: SEE IMGAE
     Route: 042
     Dates: start: 20050107, end: 20050107
  4. OMNISCAN [Suspect]
     Indication: THROMBOSIS
     Dosage: SEE IMGAE
     Route: 042
     Dates: start: 20050107, end: 20050107
  5. OMNISCAN [Suspect]
     Indication: KIDNEY TRANSPLANT REJECTION
     Dosage: SEE IMGAE
     Route: 042
     Dates: start: 20060112, end: 20060121
  6. OMNISCAN [Suspect]
     Indication: THROMBOSIS
     Dosage: SEE IMGAE
     Route: 042
     Dates: start: 20060112, end: 20060121
  7. MULTIPLE UNSPECIFIED MEDICATION [Concomitant]

REACTIONS (1)
  - NEPHROGENIC FIBROSING DERMOPATHY [None]
